FAERS Safety Report 5690393-X (Version None)
Quarter: 2008Q2

REPORT INFORMATION
  Report Type: 
  Country: None (occurrence: None)
  Receive Date: 20080401
  Receipt Date: 20031013
  Transmission Date: 20081010
  Serious: Yes (Death)
  Sender: FDA-Public Use
  Company Number: US-ROCHE-349296

PATIENT
  Age: 51 Year
  Sex: Female
  Weight: 70.5 kg

DRUGS (6)
  1. KLONOPIN [Suspect]
     Indication: ANXIETY
     Route: 048
  2. NARCOTICS NOS [Concomitant]
     Indication: HEADACHE
     Route: 048
  3. BACLOFEN [Concomitant]
     Indication: PAIN
     Route: 048
  4. PREMARIN [Concomitant]
     Indication: HORMONE REPLACEMENT THERAPY
     Route: 048
  5. ZOCOR [Concomitant]
     Dosage: TAKEN AT BEDTIME.
     Route: 048
  6. NEURONTIN [Concomitant]
     Indication: HEADACHE
     Route: 048

REACTIONS (2)
  - DEATH [None]
  - HEADACHE [None]
